FAERS Safety Report 19872621 (Version 2)
Quarter: 2021Q4

REPORT INFORMATION
  Report Type: Other
  Country: US (occurrence: US)
  Receive Date: 20210923
  Receipt Date: 20211008
  Transmission Date: 20220304
  Serious: Yes (Other)
  Sender: FDA-Public Use
  Company Number: US-ROCHE-2910606

PATIENT
  Sex: Female

DRUGS (1)
  1. VALCYTE [Suspect]
     Active Substance: VALGANCICLOVIR HYDROCHLORIDE
     Indication: Lung transplant
     Dosage: ONE TAB THREE TIMES WEEKLY ON M,W,F
     Route: 048

REACTIONS (3)
  - Neoplasm malignant [Unknown]
  - Immobile [Unknown]
  - Off label use [Unknown]
